FAERS Safety Report 4309023-4 (Version None)
Quarter: 2004Q1

REPORT INFORMATION
  Report Type: 
  Country: None (occurrence: None)
  Receive Date: 20040301
  Receipt Date: 20030224
  Transmission Date: 20041129
  Serious: Yes (Hospitalization)
  Sender: FDA-Public Use
  Company Number: 03-02-0216

PATIENT
  Age: 69 Year
  Sex: Female
  Weight: 90.2658 kg

DRUGS (3)
  1. HYDROCHLOROTHIAZIDE TAB [Suspect]
     Indication: HYPERTENSION
     Dosage: 50MG QD ORAL
     Route: 048
     Dates: start: 19981224, end: 20021028
  2. ISOPTIN TAB [Concomitant]
  3. .. [Suspect]

REACTIONS (1)
  - GOUT [None]
